FAERS Safety Report 17400707 (Version 2)
Quarter: 2022Q1

REPORT INFORMATION
  Report Type: Spontaneous
  Country: CA (occurrence: CA)
  Receive Date: 20200211
  Receipt Date: 20220307
  Transmission Date: 20220423
  Serious: Yes (Hospitalization, Other)
  Sender: FDA-Public Use
  Company Number: CA-APOTEX-2016AP007698

PATIENT
  Age: 45 Year

DRUGS (13)
  1. TOPIRAMATE [Interacting]
     Active Substance: TOPIRAMATE
     Indication: Status epilepticus
     Dosage: 200 MILLIGRAM, TWO TIMES A DAY
     Route: 065
  2. TOPIRAMATE [Interacting]
     Active Substance: TOPIRAMATE
     Indication: Seizure
  3. TOPIRAMATE [Interacting]
     Active Substance: TOPIRAMATE
     Indication: Generalised tonic-clonic seizure
  4. VALPROIC ACID [Interacting]
     Active Substance: VALPROIC ACID
     Indication: Generalised tonic-clonic seizure
     Dosage: 750 MILLIGRAM, 3 TIMES A DAY
     Route: 048
  5. VALPROIC ACID [Interacting]
     Active Substance: VALPROIC ACID
     Indication: Seizure
     Dosage: UNK
     Route: 048
  6. KEPPRA [Concomitant]
     Active Substance: LEVETIRACETAM
     Indication: Generalised tonic-clonic seizure
     Dosage: 1500 MILLIGRAM, TWO TIMES A DAY
     Route: 065
  7. KEPPRA [Concomitant]
     Active Substance: LEVETIRACETAM
     Indication: Seizure
  8. PHENYTOIN [Concomitant]
     Active Substance: PHENYTOIN
     Indication: Status epilepticus
     Dosage: UNK
     Route: 040
  9. PHENYTOIN [Concomitant]
     Active Substance: PHENYTOIN
     Indication: Generalised tonic-clonic seizure
     Dosage: UNK
     Route: 042
  10. PHENYTOIN [Concomitant]
     Active Substance: PHENYTOIN
     Indication: Seizure
  11. CLONAZEPAM [Concomitant]
     Active Substance: CLONAZEPAM
     Indication: Status epilepticus
     Dosage: 1 MILLIGRAM, TWO TIMES A DAY
     Route: 065
  12. CLONAZEPAM [Concomitant]
     Active Substance: CLONAZEPAM
     Indication: Generalised tonic-clonic seizure
     Dosage: 750 MILLIGRAM, 3 TIMES A DAY
     Route: 065
  13. CLONAZEPAM [Concomitant]
     Active Substance: CLONAZEPAM
     Indication: Seizure

REACTIONS (7)
  - Generalised tonic-clonic seizure [Recovered/Resolved]
  - Pneumonia [Recovered/Resolved]
  - Pneumonia aspiration [Recovered/Resolved]
  - Toxic encephalopathy [Recovered/Resolved]
  - Encephalopathy [Recovered/Resolved]
  - Drug interaction [Recovered/Resolved]
  - Hyperammonaemia [Recovered/Resolved]
